FAERS Safety Report 9780496 (Version 7)
Quarter: 2017Q1

REPORT INFORMATION
  Report Type: Report from Study
  Country: DE (occurrence: DE)
  Receive Date: 20131224
  Receipt Date: 20170217
  Transmission Date: 20170429
  Serious: Yes (Hospitalization, Other)
  Sender: FDA-Public Use
  Company Number: DE-ROCHE-1322217

PATIENT
  Age: 56 Year
  Sex: Female

DRUGS (12)
  1. ROCEPHIN [Concomitant]
     Active Substance: CEFTRIAXONE SODIUM
  2. LEFLUNOMID [Suspect]
     Active Substance: LEFLUNOMIDE
     Indication: RHEUMATOID ARTHRITIS
     Route: 065
     Dates: start: 200302
  3. TRANSTEC [Concomitant]
     Active Substance: BUPRENORPHINE
     Route: 050
     Dates: end: 201309
  4. RAMIPRIL. [Concomitant]
     Active Substance: RAMIPRIL
  5. NOVAMINE [Concomitant]
     Active Substance: ALANINE\ARGININE\ASPARTIC ACID\GLUTAMIC ACID\GLYCINE\HISTIDINE\ISOLEUCINE\LEUCINE\LYSINE ACETATE\METHIONINE\PHENYLALANINE\PROLINE\SERINE\THREONINE\TRYPTOPHAN\TYROSINE\VALINE
  6. INSULIN [Concomitant]
     Active Substance: INSULIN NOS
     Dosage: AS REQUIRED
     Route: 065
  7. VITAMIN D3 [Concomitant]
     Active Substance: CHOLECALCIFEROL
  8. PREDNISOLON [Concomitant]
     Active Substance: PREDNISOLONE
     Route: 065
  9. DICLAC [Concomitant]
     Active Substance: DICLOFENAC
     Route: 065
  10. RITUXIMAB [Suspect]
     Active Substance: RITUXIMAB
     Indication: RHEUMATOID ARTHRITIS
     Dosage: DATE OF MOST RECENT DOSE OF RITUXIMAB (500 MG): 26/FEB/2013
     Route: 042
     Dates: start: 20130226
  11. PANTOZOL [Concomitant]
     Active Substance: PANTOPRAZOLE SODIUM
  12. ENALAPRIL [Concomitant]
     Active Substance: ENALAPRIL
     Route: 065

REACTIONS (12)
  - Infectious pleural effusion [Recovered/Resolved]
  - Fistula [Recovered/Resolved]
  - Squamous cell carcinoma [Recovered/Resolved]
  - Pneumonia [Unknown]
  - Pneumonia [Not Recovered/Not Resolved]
  - Postoperative respiratory failure [Recovered/Resolved]
  - Bile duct stenosis [Not Recovered/Not Resolved]
  - Umbilical hernia, obstructive [Unknown]
  - Postoperative respiratory distress [Recovered/Resolved]
  - Peritonitis [Unknown]
  - Cholecystitis infective [Not Recovered/Not Resolved]
  - Pancreatitis acute [Unknown]

NARRATIVE: CASE EVENT DATE: 20130617
